FAERS Safety Report 14545144 (Version 1)
Quarter: 2018Q1

REPORT INFORMATION
  Report Type: Spontaneous
  Country: US (occurrence: US)
  Receive Date: 20180218
  Receipt Date: 20180218
  Transmission Date: 20180509
  Serious: No
  Sender: FDA-Public Use
  Company Number: US-IPSEN BIOPHARMACEUTICALS, INC.-2017-03742

PATIENT
  Sex: Female

DRUGS (5)
  1. LISINOPRIL. [Concomitant]
     Active Substance: LISINOPRIL
  2. LASIX [Concomitant]
     Active Substance: FUROSEMIDE
  3. CELEBREX [Concomitant]
     Active Substance: CELECOXIB
  4. CYMBALTA [Concomitant]
     Active Substance: DULOXETINE HYDROCHLORIDE
  5. DYSPORT [Suspect]
     Active Substance: ABOBOTULINUMTOXINA
     Indication: SKIN WRINKLING
     Dosage: 60 UNITS
     Route: 030
     Dates: start: 20170315, end: 20170315

REACTIONS (3)
  - Product preparation error [Unknown]
  - Overdose [Unknown]
  - Drug ineffective [Unknown]
